FAERS Safety Report 4959985-7 (Version None)
Quarter: 2006Q1

REPORT INFORMATION
  Report Type: 
  Country: None (occurrence: None)
  Receive Date: 20060331
  Receipt Date: 20050218
  Transmission Date: 20060701
  Serious: Yes (Hospitalization, Disabling)
  Sender: FDA-Public Use
  Company Number: US-MERCK-0502USA02713

PATIENT
  Age: 44 Year
  Sex: Male
  Weight: 84 kg

DRUGS (2)
  1. VIOXX [Suspect]
     Indication: SHOULDER PAIN
     Route: 048
     Dates: start: 20000728, end: 20030522
  2. VICODIN [Concomitant]
     Route: 065

REACTIONS (3)
  - DEEP VEIN THROMBOSIS [None]
  - DIVERTICULUM [None]
  - PULMONARY EMBOLISM [None]
